FAERS Safety Report 15370522 (Version 1)
Quarter: 2018Q3

REPORT INFORMATION
  Report Type: Spontaneous
  Country: GB (occurrence: GB)
  Receive Date: 20180911
  Receipt Date: 20180911
  Transmission Date: 20181010
  Serious: Yes (Hospitalization)
  Sender: FDA-Public Use
  Company Number: GB-009507513-2006-145354-NL

PATIENT
  Sex: Female
  Weight: 78 kg

DRUGS (17)
  1. IMPLANON [Suspect]
     Active Substance: ETONOGESTREL
     Indication: PRODUCT USED FOR UNKNOWN INDICATION
     Dosage: 1 DF, UNKNOWN
     Route: 059
     Dates: start: 20050923, end: 20060627
  2. IMPLANON [Suspect]
     Active Substance: ETONOGESTREL
     Dosage: 1 DF, UNKNOWN
     Route: 059
     Dates: start: 20050923, end: 20060627
  3. ALBUTEROL. [Concomitant]
     Active Substance: ALBUTEROL
     Dosage: 250 MG, QD
     Route: 048
     Dates: start: 20051201, end: 20051208
  4. MARVELON [Concomitant]
     Active Substance: DESOGESTREL\ETHINYL ESTRADIOL
     Indication: CONTRACEPTION
     Dosage: UNK
     Route: 048
     Dates: start: 20060620
  5. ACETAMINOPHEN (+) BUTALBITAL (+) CAFFEINE (+) CODEINE PHOSPHATE [Concomitant]
     Indication: PAIN
     Route: 048
     Dates: start: 20051201
  6. ERYTHROMYCIN. [Concomitant]
     Active Substance: ERYTHROMYCIN
     Indication: LOWER RESPIRATORY TRACT INFECTION
     Dosage: 500 MG, QD
     Route: 048
     Dates: start: 20051005, end: 20051012
  7. ACETAMINOPHEN AND CODEINE [Concomitant]
     Active Substance: ACETAMINOPHEN\CODEINE PHOSPHATE
     Indication: PAIN
     Route: 048
     Dates: start: 20051128
  8. ALBUTEROL. [Concomitant]
     Active Substance: ALBUTEROL
     Indication: PAIN
     Dosage: 500 MG, OW
     Route: 048
     Dates: start: 20051005, end: 20051012
  9. ALBUTEROL. [Concomitant]
     Active Substance: ALBUTEROL
     Indication: LOWER RESPIRATORY TRACT INFECTION
     Dosage: 2 DF, UNK
     Route: 048
     Dates: start: 20060616
  10. ALBUTEROL. [Concomitant]
     Active Substance: ALBUTEROL
     Indication: INFECTIVE TENOSYNOVITIS
     Dosage: 10 MG, UNK
     Route: 048
     Dates: start: 20060510
  11. MERCILON [Suspect]
     Active Substance: DESOGESTREL\ETHINYL ESTRADIOL
     Indication: VAGINAL HAEMORRHAGE
     Route: 048
     Dates: start: 20051124
  12. ACETAMINOPHEN (+) DIHYDROCODEINE BITARTRATE [Concomitant]
     Active Substance: ACETAMINOPHEN\DIHYDROCODEINE BITARTRATE
     Indication: PAIN
     Route: 048
     Dates: start: 20051201
  13. NORETHINDRONE. [Concomitant]
     Active Substance: NORETHINDRONE
     Indication: HAEMORRHAGE
     Dosage: 10 MG, QD
     Route: 048
     Dates: start: 20060510
  14. NORETHINDRONE. [Concomitant]
     Active Substance: NORETHINDRONE
     Indication: VAGINAL HAEMORRHAGE
  15. ALBUTEROL. [Concomitant]
     Active Substance: ALBUTEROL
     Indication: HAEMORRHAGE
     Dosage: UNK
     Route: 048
     Dates: start: 20051201
  16. CEPHALOSPORIN C [Concomitant]
     Active Substance: CEPHALOSPORIN C
     Indication: INFECTIVE TENOSYNOVITIS
     Dosage: 250 MG, QD
     Route: 048
     Dates: start: 20051201, end: 20051208
  17. ALBUTEROL. [Concomitant]
     Active Substance: ALBUTEROL
     Indication: ASTHMA
     Dosage: UNK
     Route: 048
     Dates: start: 20060616

REACTIONS (3)
  - Abortion spontaneous [Recovered/Resolved]
  - Menometrorrhagia [Recovered/Resolved]
  - Unintended pregnancy [Recovered/Resolved]
